FAERS Safety Report 20456018 (Version 1)
Quarter: 2022Q1

REPORT INFORMATION
  Report Type: Spontaneous
  Country: US (occurrence: None)
  Receive Date: 20220210
  Receipt Date: 20220210
  Transmission Date: 20220424
  Serious: Yes (Other)
  Sender: FDA-Public Use
  Company Number: None

PATIENT
  Age: 33 Year
  Sex: Male
  Weight: 80 kg

DRUGS (1)
  1. IBUPROFEN [Suspect]
     Active Substance: IBUPROFEN
     Dosage: 200MG  ONE TIME  ORAL?
     Route: 048

REACTIONS (4)
  - Swelling face [None]
  - Lip swelling [None]
  - Swelling of eyelid [None]
  - Throat tightness [None]

NARRATIVE: CASE EVENT DATE: 20220201
